FAERS Safety Report 12099907 (Version 2)
Quarter: 2016Q1

REPORT INFORMATION
  Report Type: Spontaneous
  Country: US (occurrence: US)
  Receive Date: 20160222
  Receipt Date: 20160224
  Transmission Date: 20160526
  Serious: Yes (Hospitalization, Other)
  Sender: FDA-Public Use
  Company Number: US-BAYER-2016-027251

PATIENT
  Age: 63 Year
  Sex: Female
  Weight: 70 kg

DRUGS (6)
  1. CLIMARA [Suspect]
     Active Substance: ESTRADIOL
     Indication: HYSTERECTOMY
     Dosage: 0.06 MG, PATCH, EVERY 3 DAYS
     Route: 062
     Dates: start: 2005, end: 2009
  2. FERROUS SULFATE [Concomitant]
     Active Substance: FERROUS SULFATE\FERROUS SULFATE, DRIED
     Dosage: 325 MG, BID
  3. VIVELLE [Suspect]
     Active Substance: ESTRADIOL
     Indication: HYSTERECTOMY
  4. CALAN [Concomitant]
     Active Substance: VERAPAMIL HYDROCHLORIDE
     Indication: BLOOD PRESSURE MANAGEMENT
     Dosage: 80 MG, TID
     Dates: start: 1989
  5. QVAR [Concomitant]
     Active Substance: BECLOMETHASONE DIPROPIONATE
     Indication: ASTHMA
     Dosage: 2 PUFF(S), QD
  6. ALORA [Suspect]
     Active Substance: ESTRADIOL
     Indication: HYSTERECTOMY

REACTIONS (12)
  - Vomiting [None]
  - White blood cell count decreased [None]
  - Breast cancer [Recovering/Resolving]
  - Vaginal haemorrhage [None]
  - Metastases to lymph nodes [None]
  - Weight decreased [None]
  - Haematocrit decreased [None]
  - Alopecia [None]
  - Off label use [Recovered/Resolved]
  - Nausea [None]
  - Pain [None]
  - Haemoglobin decreased [None]

NARRATIVE: CASE EVENT DATE: 2005
